FAERS Safety Report 4494230-0 (Version None)
Quarter: 2004Q4

REPORT INFORMATION
  Report Type: 
  Country: None (occurrence: None)
  Receive Date: 20041104
  Receipt Date: 20041104
  Transmission Date: 20050328
  Serious: Yes (Hospitalization)
  Sender: FDA-Public Use
  Company Number: None

PATIENT
  Age: 65 Year
  Sex: Male
  Weight: 86.1834 kg

DRUGS (2)
  1. KENALOG [Suspect]
     Indication: BACK PAIN
     Dosage: 60 MG DEEP IM
     Route: 030
     Dates: start: 20041022
  2. XYLOCAINE [Suspect]
     Dosage: 1CC DEEP IM
     Route: 030

REACTIONS (1)
  - STAPHYLOCOCCAL BACTERAEMIA [None]
